FAERS Safety Report 19603618 (Version 1)
Quarter: 2021Q3

REPORT INFORMATION
  Report Type: Spontaneous
  Country: DE (occurrence: DE)
  Receive Date: 20210724
  Receipt Date: 20210724
  Transmission Date: 20211014
  Serious: Yes (Hospitalization)
  Sender: FDA-Public Use
  Company Number: DE-ACCORD-232785

PATIENT
  Age: 79 Year
  Sex: Female

DRUGS (10)
  1. METFORMIN [Concomitant]
     Active Substance: METFORMIN HYDROCHLORIDE
     Dosage: 1000 MG, 1?0?1?0, TABLET
     Route: 048
  2. METOPROLOL. [Concomitant]
     Active Substance: METOPROLOL
     Dosage: 95 MG, 1?0?0.5?0, PROLONGED?RELEASE TABLET
     Route: 048
  3. HYDROCHLOROTHIAZIDE/RAMIPRIL [Concomitant]
     Active Substance: HYDROCHLOROTHIAZIDE\RAMIPRIL
     Dosage: 12.5/2.5 MG, 1?0?0?0, TABLET
     Route: 048
  4. OMEPRAZOLE. [Concomitant]
     Active Substance: OMEPRAZOLE
     Dosage: 20 MG, ACCORDING TO THE SCHEME, PROLONGED?RELEASE CAPSULE
     Route: 048
  5. CLOPIDOGREL [Suspect]
     Active Substance: CLOPIDOGREL BISULFATE
     Indication: PRODUCT USED FOR UNKNOWN INDICATION
     Dosage: 75 MG, 1?0?0?0, TABLET
     Route: 048
  6. DIGITOXIN [Concomitant]
     Active Substance: DIGITOXIN
     Dosage: 0.07 MG, 1?0?0?0, TABLET
     Route: 048
  7. DULAGLUTIDE. [Concomitant]
     Active Substance: DULAGLUTIDE
     Dosage: 1.5 MG, ACCORDING TO THE SCHEME, PRE?FILLED SYRINGES
     Route: 058
  8. APIXABAN [Suspect]
     Active Substance: APIXABAN
     Indication: PRODUCT USED FOR UNKNOWN INDICATION
     Dosage: 2.5 MG, 1?0?1?0, TABLET
     Route: 048
  9. ATORVASTATIN [Concomitant]
     Active Substance: ATORVASTATIN
     Dosage: 20 MG, 0?0?1?0, TABLET
     Route: 048
  10. BECLOMETASONE/FORMOTEROL [Concomitant]
     Dosage: 100/6 UG, 1?0?1?0, METERED DOSE INHALER
     Route: 055

REACTIONS (8)
  - Headache [Unknown]
  - Dizziness [Unknown]
  - Weight decreased [Unknown]
  - Pain [Unknown]
  - Night sweats [Unknown]
  - Anaemia [Unknown]
  - Haematochezia [Unknown]
  - Dyspnoea [Unknown]
